FAERS Safety Report 7939930-2 (Version None)
Quarter: 2011Q4

REPORT INFORMATION
  Report Type: 
  Country: None (occurrence: None)
  Receive Date: 20111125
  Receipt Date: 20111118
  Transmission Date: 20120403
  Serious: Yes (Hospitalization, Other)
  Sender: FDA-Public Use
  Company Number: US-AMGEN-KDL123346

PATIENT
  Age: 36 Year
  Sex: Female
  Weight: 68.1 kg

DRUGS (9)
  1. EPOPEN                             /00928301/ [Concomitant]
  2. MYCOPHENOLATE MOFETIL [Concomitant]
     Dosage: UNK
     Dates: start: 20010131
  3. TACROLIMUS [Concomitant]
     Dosage: UNK
     Dates: start: 20011201
  4. PREDNISONE TAB [Concomitant]
     Dosage: UNK
     Dates: start: 20010131
  5. CYCLOSPORINE [Concomitant]
     Dosage: UNK
     Dates: start: 20010131, end: 20011201
  6. ARANESP [Suspect]
     Indication: RENAL FAILURE CHRONIC
     Dosage: 60 MUG, QWK
     Route: 058
     Dates: start: 20050324
  7. VITAMIN B-12 [Concomitant]
  8. ZEMPLAR [Concomitant]
  9. PROCRIT [Suspect]
     Indication: RENAL FAILURE CHRONIC
     Dosage: 20000 IU, 2 TIMES/WK
     Route: 058
     Dates: start: 20011129, end: 20050324

REACTIONS (2)
  - APLASIA PURE RED CELL [None]
  - THERAPEUTIC RESPONSE DECREASED [None]
